FAERS Safety Report 8439018-0 (Version None)
Quarter: 2012Q2

REPORT INFORMATION
  Report Type: 
  Country: None (occurrence: None)
  Receive Date: 20120323
  Receipt Date: 20110819
  Transmission Date: 20120825
  Serious: Yes (Other)
  Sender: FDA-Public Use
  Company Number: 163-21880-11053532

PATIENT
  Age: 46 Year
  Sex: Female

DRUGS (5)
  1. VELCADE [Concomitant]
  2. ACYCLOVIR [Concomitant]
  3. LENALIDOMIDE [Suspect]
     Indication: MULTIPLE MYELOMA
     Dosage: 5 MG, DAILY X14 DAYS Q 3 WEEKS, PO
     Route: 048
     Dates: start: 20110418, end: 20110524
  4. DEXAMETHASONE [Concomitant]
  5. TAMOXIFEN CITRATE [Concomitant]

REACTIONS (1)
  - THROMBOCYTOPENIA [None]
